FAERS Safety Report 19215312 (Version 1)
Quarter: 2021Q2

REPORT INFORMATION
  Report Type: Spontaneous
  Country: GB (occurrence: GB)
  Receive Date: 20210505
  Receipt Date: 20210505
  Transmission Date: 20210717
  Serious: Yes (Hospitalization)
  Sender: FDA-Public Use
  Company Number: GB-TEVA-2021-GB-1906577

PATIENT
  Age: 63 Year
  Sex: Female
  Weight: 75 kg

DRUGS (4)
  1. PREDNISOLONE. [Concomitant]
     Active Substance: PREDNISOLONE
  2. RANITIDINE. [Concomitant]
     Active Substance: RANITIDINE
  3. ADOPORT [Concomitant]
     Active Substance: TACROLIMUS
  4. FAMOTIDINE. [Suspect]
     Active Substance: FAMOTIDINE
     Indication: ABDOMINAL DISCOMFORT
     Route: 048
     Dates: start: 20210205, end: 20210322

REACTIONS (6)
  - Atypical pneumonia [Unknown]
  - Dyspnoea [Recovered/Resolved]
  - Angina pectoris [Unknown]
  - Feeling abnormal [Unknown]
  - Headache [Unknown]
  - Chest pain [Unknown]

NARRATIVE: CASE EVENT DATE: 20210208
